FAERS Safety Report 15530678 (Version 2)
Quarter: 2020Q3

REPORT INFORMATION
  Report Type: Spontaneous
  Country: PL (occurrence: PL)
  Receive Date: 20181018
  Receipt Date: 20200811
  Transmission Date: 20201102
  Serious: Yes (Hospitalization, Other)
  Sender: FDA-Public Use
  Company Number: PL-009507513-1801POL007015

PATIENT
  Age: 37 Year
  Sex: Female

DRUGS (26)
  1. EPOETIN [Suspect]
     Active Substance: ERYTHROPOIETIN
     Dosage: 2000 IU,QW
     Route: 058
  2. IRON (UNSPECIFIED) [Suspect]
     Active Substance: IRON
     Indication: PRODUCT USED FOR UNKNOWN INDICATION
     Dosage: 100 MILLIGRAM, QW
     Route: 042
     Dates: start: 201408
  3. SPIRAMYCIN [Suspect]
     Active Substance: SPIRAMYCIN
     Indication: CYSTITIS
  4. IRON DEXTRAN [Suspect]
     Active Substance: IRON DEXTRAN
     Dosage: 100 UNK
     Route: 048
     Dates: start: 201408
  5. HEPARIN [Concomitant]
     Active Substance: HEPARIN SODIUM
     Indication: ANTICOAGULANT THERAPY
     Dosage: UNK UNK,UNK
     Route: 065
  6. IRON (UNSPECIFIED) [Suspect]
     Active Substance: IRON
     Dosage: UNK
  7. ASCORBIC ACID (+) FERROUS SULFATE [Suspect]
     Active Substance: ASCORBIC ACID\FERROUS SULFATE
     Dosage: UNK UNK, QD
     Route: 048
  8. IRON DEXTRAN [Suspect]
     Active Substance: IRON DEXTRAN
     Dosage: 100 MG, QW
     Route: 042
  9. FERINJECT [Suspect]
     Active Substance: FERRIC CARBOXYMALTOSE
     Dosage: 100 MG, UNK
     Route: 042
     Dates: start: 201408
  10. ASCORBIC ACID. [Concomitant]
     Active Substance: ASCORBIC ACID
     Indication: PRODUCT USED FOR UNKNOWN INDICATION
     Dosage: UNK
     Dates: start: 201503
  11. CHOLECALCIFEROL (+) RISEDRONATE SODIUM [Concomitant]
     Indication: PRODUCT USED FOR UNKNOWN INDICATION
     Dosage: UNK
  12. TORSEMIDE. [Suspect]
     Active Substance: TORSEMIDE
     Indication: HYPERTENSION
     Dosage: 2.5 MG,UNK
     Route: 065
  13. SPIRAMYCIN [Suspect]
     Active Substance: SPIRAMYCIN
     Indication: TOXOPLASMOSIS
     Dosage: UNK UNK,UNK
     Route: 065
     Dates: start: 20150501
  14. IRON DEXTRAN [Suspect]
     Active Substance: IRON DEXTRAN
     Dosage: 100 UNK
     Route: 048
     Dates: start: 201408
  15. CEFUROXIME. [Suspect]
     Active Substance: CEFUROXIME
     Indication: CYSTITIS
     Dosage: UNK UNK,UNK
     Route: 065
     Dates: start: 20150501
  16. EPOETIN [Suspect]
     Active Substance: ERYTHROPOIETIN
     Indication: PRODUCT USED FOR UNKNOWN INDICATION
     Dosage: 4000 IU INTERNATIONAL UNIT(S), QW; PER WEEK AFTER EACH
     Route: 058
     Dates: start: 20150801
  17. LEVOTHYROXINE SODIUM. [Suspect]
     Active Substance: LEVOTHYROXINE SODIUM
     Indication: HYPOTHYROIDISM
     Dosage: 25 UG,QD
     Route: 065
     Dates: start: 20150501
  18. IRON (UNSPECIFIED) [Suspect]
     Active Substance: IRON
     Dosage: UNK
     Dates: start: 201503
  19. IRON DEXTRAN [Suspect]
     Active Substance: IRON DEXTRAN
     Dosage: UNK
     Route: 048
     Dates: start: 201503
  20. EPOETIN BETA [Suspect]
     Active Substance: ERYTHROPOIETIN
     Dosage: 2000 U
     Route: 058
  21. SIMVASTATIN. [Suspect]
     Active Substance: SIMVASTATIN
     Indication: HYPERCHOLESTEROLAEMIA
     Dosage: 20 MG, UNK
     Route: 065
     Dates: end: 2015
  22. METHYLDOPA. [Suspect]
     Active Substance: METHYLDOPA
     Indication: HYPERTENSION
     Dosage: 3 DOSAGE FORM, QD; 1 DF, TID
     Route: 065
     Dates: start: 20150301
  23. ASPIRIN. [Suspect]
     Active Substance: ASPIRIN
     Indication: PROPHYLAXIS
     Dosage: 75 MG,UNK
     Route: 048
     Dates: start: 20150301
  24. IRON (UNSPECIFIED) [Suspect]
     Active Substance: IRON
     Dosage: UNK
     Route: 042
     Dates: start: 201408
  25. MALTOFER (IRON POLYMALTOSE) [Suspect]
     Active Substance: IRON POLYMALTOSE
     Dosage: UNK
     Route: 048
     Dates: start: 201503
  26. FOLIC ACID. [Concomitant]
     Active Substance: FOLIC ACID
     Indication: PRODUCT USED FOR UNKNOWN INDICATION
     Dosage: 15 MILLIGRAM, QD
     Route: 042
     Dates: start: 20150301

REACTIONS (14)
  - Haematocrit decreased [Unknown]
  - Contraindicated product administered [Unknown]
  - Haemoglobin decreased [Unknown]
  - Live birth [Unknown]
  - Maternal exposure during pregnancy [Unknown]
  - Premature delivery [Unknown]
  - Hypothyroidism [Unknown]
  - Cystitis [Unknown]
  - Premature rupture of membranes [Unknown]
  - Oedema peripheral [Unknown]
  - Blood albumin decreased [Unknown]
  - Toxoplasmosis [Unknown]
  - Exposure during pregnancy [Unknown]
  - Off label use [Unknown]

NARRATIVE: CASE EVENT DATE: 201505
